FAERS Safety Report 4911770-8 (Version None)
Quarter: 2006Q1

REPORT INFORMATION
  Report Type: 
  Country: None (occurrence: None)
  Receive Date: 20060213
  Receipt Date: 20060213
  Transmission Date: 20060701
  Serious: Yes (Hospitalization)
  Sender: FDA-Public Use
  Company Number: None

PATIENT
  Age: 75 Year
  Sex: Male
  Weight: 105.9 kg

DRUGS (2)
  1. ONDANSETRON [Suspect]
     Indication: NAUSEA
     Dosage: 8 MG ONCE   IV
     Route: 042
     Dates: start: 20060202, end: 20060202
  2. ONDANSETRON [Suspect]
     Indication: VOMITING
     Dosage: 8 MG ONCE   IV
     Route: 042
     Dates: start: 20060202, end: 20060202

REACTIONS (8)
  - DEPRESSED LEVEL OF CONSCIOUSNESS [None]
  - HYPOXIA [None]
  - LOSS OF CONSCIOUSNESS [None]
  - MIOSIS [None]
  - POST PROCEDURAL COMPLICATION [None]
  - RESPIRATORY FAILURE [None]
  - SPEECH DISORDER [None]
  - TREMOR [None]
